FAERS Safety Report 5507076-9 (Version None)
Quarter: 2007Q4

REPORT INFORMATION
  Report Type: 
  Country: None (occurrence: None)
  Receive Date: 20071102
  Receipt Date: 20071026
  Transmission Date: 20080405
  Serious: Yes (Hospitalization)
  Sender: FDA-Public Use
  Company Number: 163-20785-07101559

PATIENT
  Age: 74 Year
  Sex: Female
  Weight: 66.7 kg

DRUGS (20)
  1. THALOMID [Suspect]
     Indication: MULTIPLE MYELOMA
     Dosage: 200 MG, AT NIGHT, ORAL
     Route: 048
     Dates: start: 20070411, end: 20070508
  2. THALOMID [Suspect]
     Indication: MULTIPLE MYELOMA
     Dosage: 200 MG, AT NIGHT, ORAL
     Route: 048
     Dates: start: 20070522
  3. DEXAMETHASONE TAB [Suspect]
     Indication: MULTIPLE MYELOMA
     Dosage: 40 MG, AT NIGHT
     Dates: start: 20070411, end: 20070508
  4. LISINOPRIL [Concomitant]
  5. FOSAMAX [Concomitant]
  6. PERCOCET [Concomitant]
  7. COUMADIN [Concomitant]
  8. AEROLIZED PENTAMIDINE (PENTAMIDINE) (AEROSOL FOR INHALATION) [Concomitant]
  9. ACYCLOVIR [Concomitant]
  10. MIRALAX [Concomitant]
  11. CARTIA XT [Concomitant]
  12. ZOCOR [Concomitant]
  13. AMITRIPTYLINE HCL [Concomitant]
  14. OXYCODONE HCL [Concomitant]
  15. AUGMENTIN '125' [Concomitant]
  16. DIFLUCAN [Concomitant]
  17. OXYGEN (OXYGEN) [Concomitant]
  18. PAIN MEDICATION (ANAGESICS) [Concomitant]
  19. K-DUR 10 [Concomitant]
  20. SILVADENE [Concomitant]

REACTIONS (8)
  - ABASIA [None]
  - ASTHENIA [None]
  - CHILLS [None]
  - CHRONIC OBSTRUCTIVE PULMONARY DISEASE [None]
  - CONDITION AGGRAVATED [None]
  - DYSPNOEA [None]
  - FATIGUE [None]
  - TREMOR [None]
